FAERS Safety Report 5467969-8 (Version None)
Quarter: 2007Q3

REPORT INFORMATION
  Report Type: 
  Country: None (occurrence: None)
  Receive Date: 20070924
  Receipt Date: 20070917
  Transmission Date: 20080115
  Serious: Yes (Hospitalization)
  Sender: FDA-Public Use
  Company Number: 056-C5013-07090244

PATIENT
  Age: 77 Year
  Sex: Female
  Weight: 52 kg

DRUGS (1)
  1. CC-5013 (LENALIDOMIDE) (CAPSULES) [Suspect]
     Indication: NON-HODGKIN'S LYMPHOMA
     Dosage: 25 MG, DAILY, ORAL
     Route: 048
     Dates: start: 20070713, end: 20070726

REACTIONS (4)
  - ASTHENIA [None]
  - BILIARY DILATATION [None]
  - DYSPNOEA [None]
  - PAIN [None]
